FAERS Safety Report 5549114-3 (Version None)
Quarter: 2007Q4

REPORT INFORMATION
  Report Type: 
  Country: None (occurrence: None)
  Receive Date: 20071210
  Receipt Date: 20071126
  Transmission Date: 20080405
  Serious: Yes (Hospitalization)
  Sender: FDA-Public Use
  Company Number: PHO-2007-055

PATIENT
  Age: 66 Year
  Sex: Male

DRUGS (2)
  1. PHOTOFRIN [Suspect]
     Indication: DYSPLASIA
     Dosage: 152 MG, 1X, IV
     Route: 042
     Dates: start: 20061212
  2. PHOTOFRIN [Suspect]
     Indication: PHARYNGEAL DISORDER
     Dosage: 152 MG, 1X, IV
     Route: 042
     Dates: start: 20061212

REACTIONS (4)
  - CHEST PAIN [None]
  - DYSPHONIA [None]
  - FLATULENCE [None]
  - SUNBURN [None]
